FAERS Safety Report 5370329-1 (Version None)
Quarter: 2007Q2

REPORT INFORMATION
  Report Type: 
  Country: None (occurrence: None)
  Receive Date: 20070626
  Receipt Date: 20061106
  Transmission Date: 20071010
  Serious: No
  Sender: FDA-Public Use
  Company Number: US-AMGEN-US199272

PATIENT
  Sex: Female
  Weight: 59.9 kg

DRUGS (9)
  1. ARANESP [Suspect]
     Indication: RENAL FAILURE CHRONIC
     Route: 058
     Dates: start: 20051018, end: 20061010
  2. TACROLIMUS [Concomitant]
  3. SODIUM BICARBONATE [Concomitant]
     Dates: start: 20060112
  4. CALCIUM CARBONATE [Concomitant]
     Dates: start: 20050326
  5. CALCITRIOL [Concomitant]
  6. VYTORIN [Concomitant]
  7. ASPIRIN [Concomitant]
  8. PREDNISONE TAB [Concomitant]
  9. CELLCEPT [Concomitant]

REACTIONS (2)
  - ANAEMIA [None]
  - PARVOVIRUS B19 SEROLOGY POSITIVE [None]
